FAERS Safety Report 4407651-9 (Version None)
Quarter: 2004Q3

REPORT INFORMATION
  Report Type: 
  Country: None (occurrence: None)
  Receive Date: 20040721
  Receipt Date: 20040705
  Transmission Date: 20050211
  Serious: Yes (Other)
  Sender: FDA-Public Use
  Company Number: B0337778A

PATIENT
  Age: 80 Year
  Sex: Female

DRUGS (1)
  1. TEMOVATE [Suspect]
     Dosage: TWO TIMES PER WEEK / VAGINAL
     Route: 067
     Dates: start: 20040401

REACTIONS (2)
  - BURNING SENSATION [None]
  - SKIN ATROPHY [None]
